FAERS Safety Report 6427504-4 (Version None)
Quarter: 2009Q4

REPORT INFORMATION
  Report Type: 
  Country: None (occurrence: None)
  Receive Date: 20091104
  Receipt Date: 20091029
  Transmission Date: 20100525
  Serious: Yes (Other)
  Sender: FDA-Public Use
  Company Number: PHHY2009FR47607

PATIENT
  Sex: Female

DRUGS (1)
  1. CERTICAN [Suspect]
     Indication: ORGAN TRANSPLANT

REACTIONS (1)
  - PROTEINURIA [None]
